FAERS Safety Report 16558363 (Version 1)
Quarter: 2020Q3

REPORT INFORMATION
  Report Type: Spontaneous
  Country: GB (occurrence: GB)
  Receive Date: 20190711
  Receipt Date: 20190711
  Transmission Date: 20201105
  Serious: Yes (Other)
  Sender: FDA-Public Use
  Company Number: GB-BRISTOL-MYERS SQUIBB COMPANY-BMS-2019-064120

PATIENT
  Age: 77 Year
  Sex: Male
  Weight: 71.66 kg

DRUGS (11)
  1. VENTOLINE [SALBUTAMOL] [Suspect]
     Active Substance: ALBUTEROL SULFATE
     Indication: CHRONIC OBSTRUCTIVE PULMONARY DISEASE
     Dosage: 100 MICROGRAM, PRN
     Route: 051
     Dates: start: 2003
  2. GLYCERYL TRINITRATE [Suspect]
     Active Substance: NITROGLYCERIN
     Indication: ANGINA PECTORIS
     Dosage: 400 MICROGRAM
     Route: 055
     Dates: start: 201904
  3. LEVOTHYROXINE SODIUM. [Suspect]
     Active Substance: LEVOTHYROXINE SODIUM
     Indication: HYPOTHYROIDISM
     Dosage: 75 MICROGRAM, QD 25 MCG AND 50 MCG
     Route: 048
     Dates: start: 2009
  4. OMEPRAZOLE. [Suspect]
     Active Substance: OMEPRAZOLE
     Indication: GASTRIC ULCER
     Dosage: 20 MILLIGRAM, BID
     Route: 048
     Dates: start: 200510
  5. SPIRIVA [Suspect]
     Active Substance: TIOTROPIUM BROMIDE MONOHYDRATE
     Indication: CHRONIC OBSTRUCTIVE PULMONARY DISEASE
     Dosage: 18 MICROGRAM, QD
     Route: 055
     Dates: start: 2008
  6. CANDESARTAN. [Suspect]
     Active Substance: CANDESARTAN
     Indication: PRODUCT USED FOR UNKNOWN INDICATION
     Dosage: 8 MILLIGRAM, QD
     Route: 048
     Dates: start: 2005
  7. WARFARIN SODIUM. [Suspect]
     Active Substance: WARFARIN SODIUM
     Indication: ATRIAL FIBRILLATION
     Dosage: 3 MG OR 4 MG, QD
     Route: 048
     Dates: start: 2010
  8. BETAHISTINE [Suspect]
     Active Substance: BETAHISTINE
     Indication: EAR DISORDER
     Dosage: 16 MILLIGRAM
     Route: 048
     Dates: start: 2006
  9. CALCIUM CARBONATE/VITAMIN D3 [Suspect]
     Active Substance: CALCIUM CARBONATE\CHOLECALCIFEROL
     Indication: PRODUCT USED FOR UNKNOWN INDICATION
     Dosage: 2 DOSAGE FORM, QD
     Route: 048
     Dates: start: 20170107
  10. IBANDRONIC ACID. [Suspect]
     Active Substance: IBANDRONIC ACID
     Indication: PRODUCT USED FOR UNKNOWN INDICATION
     Dosage: 150 MILLIGRAM, QMO
     Route: 048
     Dates: start: 20170107
  11. FORMOTEROL FUMARATE DIHYDRATE [Suspect]
     Active Substance: FORMOTEROL FUMARATE DIHYDRATE
     Indication: CHRONIC OBSTRUCTIVE PULMONARY DISEASE
     Dosage: 12 MICROGRAM
     Route: 055
     Dates: start: 201809

REACTIONS (2)
  - Frequent bowel movements [Unknown]
  - Haematochezia [Unknown]
